FAERS Safety Report 10615276 (Version 1)
Quarter: 2014Q4

REPORT INFORMATION
  Report Type: Spontaneous
  Country: US (occurrence: US)
  Receive Date: 20141201
  Receipt Date: 20141201
  Transmission Date: 20150529
  Serious: No
  Sender: FDA-Public Use
  Company Number: US-PFIZER INC-2014323598

PATIENT
  Age: 51 Year
  Sex: Female
  Weight: 86 kg

DRUGS (5)
  1. NEURONTIN [Suspect]
     Active Substance: GABAPENTIN
     Dosage: 900 MG, 3X/DAY
     Route: 048
  2. NEURONTIN [Suspect]
     Active Substance: GABAPENTIN
     Dosage: 300 MG, 3X/DAY (4 CAPS BY MOUTH THREE TIMES PER DAY)
     Route: 048
     Dates: start: 20140818
  3. NEURONTIN [Suspect]
     Active Substance: GABAPENTIN
     Dosage: 300MG, 4 CAPS BY MOUTH THREE TIMES PER DAY
     Route: 048
     Dates: start: 20141106
  4. NORCO [Suspect]
     Active Substance: ACETAMINOPHEN\HYDROCODONE BITARTRATE
     Indication: NEURALGIA
     Dosage: (HYDROCODONE/APAP: 10/325 MG) 1-2 TABS BY MOUTH EVERY 4 HOURS AS NEEDED. MAX 8 PER DAY.
     Route: 048
     Dates: start: 20141029
  5. NORCO [Suspect]
     Active Substance: ACETAMINOPHEN\HYDROCODONE BITARTRATE
     Dosage: (HYDROCODONE/APAP: 10/325 MG) 1-2 TABS BY MOUTH EVERY 4 HOURS AS NEEDED. MAX 8 PER DAY.
     Route: 048
     Dates: start: 20141112

REACTIONS (2)
  - Drug ineffective [Unknown]
  - Insomnia [Unknown]
